FAERS Safety Report 7319352-8 (Version None)
Quarter: 2011Q1

REPORT INFORMATION
  Report Type: 
  Country: None (occurrence: None)
  Receive Date: 20110228
  Receipt Date: 20100212
  Transmission Date: 20110831
  Serious: No
  Sender: FDA-Public Use
  Company Number: A0844254A

PATIENT
  Sex: Male

DRUGS (2)
  1. LITHIUM CARBONATE [Suspect]
     Route: 065
  2. LAMICTAL [Suspect]
     Dosage: 200MG ALTERNATE DAYS
     Route: 048

REACTIONS (3)
  - DRUG LEVEL INCREASED [None]
  - TREMOR [None]
  - TREATMENT NONCOMPLIANCE [None]
